FAERS Safety Report 5159259-8 (Version None)
Quarter: 2006Q4

REPORT INFORMATION
  Report Type: 
  Country: None (occurrence: None)
  Receive Date: 20061120
  Receipt Date: 20061102
  Transmission Date: 20070319
  Serious: Yes (Other)
  Sender: FDA-Public Use
  Company Number: DSA_28952_2006

PATIENT
  Age: 84 Year
  Sex: Male

DRUGS (4)
  1. ENALAPRIL MALEATE [Suspect]
     Indication: HYPERTENSION
     Dosage: DF, UNK; PO
     Route: 048
  2. UNSPECIFIED DIURETIC THERAPY [Concomitant]
  3. UNSPECIFIED BETA-BLOCKERS [Concomitant]
  4. UNSPECIFIED ANTI-PLATELET THERAPY [Concomitant]

REACTIONS (1)
  - CEREBROVASCULAR DISORDER [None]
